FAERS Safety Report 23267599 (Version 1)
Quarter: 2023Q4

REPORT INFORMATION
  Report Type: Spontaneous
  Country: US (occurrence: None)
  Receive Date: 20231205
  Receipt Date: 20231205
  Transmission Date: 20240109
  Serious: Yes (unspecified)
  Sender: FDA-Public Use
  Company Number: None

PATIENT
  Age: 91 Year
  Sex: Female
  Weight: 48.08 kg

DRUGS (5)
  1. DEXAMETHASONE\NEOMYCIN SULFATE\POLYMYXIN B [Suspect]
     Active Substance: DEXAMETHASONE\NEOMYCIN SULFATE\POLYMYXIN B
     Indication: Skin fissures
     Dates: start: 20231031, end: 20231031
  2. SIMVASTATIN [Concomitant]
     Active Substance: SIMVASTATIN
  3. VALSARTAN [Concomitant]
     Active Substance: VALSARTAN
  4. 81 Aspirin [Concomitant]
  5. CALCIUM CITRATE [Concomitant]
     Active Substance: CALCIUM CITRATE

REACTIONS (2)
  - Dizziness [None]
  - Mobility decreased [None]

NARRATIVE: CASE EVENT DATE: 20231031
